FAERS Safety Report 7778362-7 (Version None)
Quarter: 2011Q3

REPORT INFORMATION
  Report Type: 
  Country: None (occurrence: None)
  Receive Date: 20110926
  Receipt Date: 20110913
  Transmission Date: 20111222
  Serious: Yes (Hospitalization)
  Sender: FDA-Public Use
  Company Number: US-BAYER-2011-013513

PATIENT
  Age: 41 Year
  Sex: Female
  Weight: 129 kg

DRUGS (8)
  1. NSAID'S [Concomitant]
     Dosage: UNK UNK, PRN
  2. ZYRTEC [Concomitant]
     Indication: MULTIPLE ALLERGIES
     Dosage: 10 MG, QD
  3. YAZ [Suspect]
     Indication: HIRSUTISM
  4. HYDROCHLOROTHIAZIDE [Concomitant]
     Indication: BLOOD PRESSURE MANAGEMENT
     Dosage: 25 MG, QD
     Dates: start: 20030101
  5. YASMIN [Suspect]
     Dosage: UNK
     Route: 048
     Dates: start: 20080201, end: 20090101
  6. PRILOSEC [Concomitant]
  7. YAZ [Suspect]
     Indication: OLIGOMENORRHOEA
     Dosage: UNK
     Route: 048
     Dates: start: 20080227, end: 20090105
  8. DIPHENHYDRAMINE HCL [Concomitant]
     Indication: PRURITUS
     Dosage: 25 MG, PRN

REACTIONS (8)
  - ANXIETY [None]
  - PAIN [None]
  - GENERAL PHYSICAL HEALTH DETERIORATION [None]
  - PULMONARY EMBOLISM [None]
  - CHEST PAIN [None]
  - DYSPNOEA [None]
  - INJURY [None]
  - EMOTIONAL DISTRESS [None]
